FAERS Safety Report 8026266-7 (Version None)
Quarter: 2012Q1

REPORT INFORMATION
  Report Type: 
  Country: None (occurrence: None)
  Receive Date: 20120105
  Receipt Date: 20111031
  Transmission Date: 20120608
  Serious: No
  Sender: FDA-Public Use
  Company Number: US-ABBOTT-11P-163-0870610-00

PATIENT
  Sex: Female

DRUGS (2)
  1. SYNTHROID [Suspect]
     Indication: AUTOIMMUNE THYROIDITIS
     Dates: start: 19980101
  2. SYNTHROID [Suspect]
     Dates: start: 19980101

REACTIONS (6)
  - ORAL MUCOSAL ERYTHEMA [None]
  - FATIGUE [None]
  - GLOSSODYNIA [None]
  - CHEILITIS [None]
  - GINGIVAL PAIN [None]
  - ALLERGY TO CHEMICALS [None]
